FAERS Safety Report 15941035 (Version 2)
Quarter: 2019Q1

REPORT INFORMATION
  Report Type: Spontaneous
  Country: US (occurrence: US)
  Receive Date: 20190208
  Receipt Date: 20190305
  Transmission Date: 20190417
  Serious: No
  Sender: FDA-Public Use
  Company Number: US-009507513-1902USA003323

PATIENT
  Sex: Male

DRUGS (1)
  1. PROVENTIL [Suspect]
     Active Substance: ALBUTEROL
     Dosage: 2 PUFF A DAY/ 4 TIMES A DAY
     Route: 055

REACTIONS (6)
  - No adverse event [Unknown]
  - Product leakage [Unknown]
  - Accidental exposure to product [Unknown]
  - Product quality issue [Unknown]
  - Exposure via skin contact [Unknown]
  - Poor quality device used [Unknown]
